FAERS Safety Report 8265196-2 (Version None)
Quarter: 2012Q2

REPORT INFORMATION
  Report Type: 
  Country: None (occurrence: None)
  Receive Date: 20120406
  Receipt Date: 20120404
  Transmission Date: 20120825
  Serious: Yes (Hospitalization)
  Sender: FDA-Public Use
  Company Number: US-GILEAD-2012-0051016

PATIENT
  Sex: Female

DRUGS (1)
  1. LETAIRIS [Suspect]
     Indication: PRODUCT USED FOR UNKNOWN INDICATION
     Dosage: 5 MG, UNK
     Route: 048
     Dates: start: 20100816

REACTIONS (5)
  - OEDEMA PERIPHERAL [None]
  - DYSPNOEA [None]
  - GASTRIC DISORDER [None]
  - FLUID RETENTION [None]
  - BACK PAIN [None]
